FAERS Safety Report 9299269 (Version 2)
Quarter: 2013Q2

REPORT INFORMATION
  Report Type: Spontaneous
  Country: US (occurrence: US)
  Receive Date: 20130520
  Receipt Date: 20130529
  Transmission Date: 20140414
  Serious: No
  Sender: FDA-Public Use
  Company Number: US-TEVA-406372USA

PATIENT
  Age: 38 Year
  Sex: Female
  Weight: 72.64 kg

DRUGS (2)
  1. PLAN B ONE-STEP [Suspect]
     Indication: POST COITAL CONTRACEPTION
     Dosage: 1.5 MILLIGRAM DAILY;
     Route: 048
     Dates: start: 20130511, end: 20130511
  2. YAZ [Concomitant]
     Indication: CONTRACEPTION

REACTIONS (3)
  - Abdominal distension [Recovered/Resolved]
  - Micturition urgency [Recovered/Resolved]
  - Off label use [Unknown]
